FAERS Safety Report 4608476-1 (Version None)
Quarter: 2005Q1

REPORT INFORMATION
  Report Type: 
  Country: None (occurrence: None)
  Receive Date: 20050315
  Receipt Date: 20050216
  Transmission Date: 20050727
  Serious: Yes (Other)
  Sender: FDA-Public Use
  Company Number: US-GLAXOSMITHKLINE-A0545918A

PATIENT
  Age: 42 Year
  Sex: Female

DRUGS (8)
  1. WELLBUTRIN [Suspect]
     Indication: SMOKING CESSATION THERAPY
     Route: 048
  2. DELSYM [Suspect]
     Indication: DRUG USE FOR UNKNOWN INDICATION
     Dates: start: 20050214
  3. ALLEGRA [Concomitant]
  4. PROMETHAZINE DM [Concomitant]
  5. ROBITUSSIN DM [Concomitant]
  6. LEVOTHYROXINE [Concomitant]
  7. Z PACK [Concomitant]
  8. BIAXIN [Concomitant]

REACTIONS (11)
  - ANXIETY [None]
  - BURNING SENSATION [None]
  - DIZZINESS [None]
  - DYSGEUSIA [None]
  - HOT FLUSH [None]
  - HYPERTENSION [None]
  - LOSS OF CONSCIOUSNESS [None]
  - MUSCLE TWITCHING [None]
  - NAUSEA [None]
  - SKIN BURNING SENSATION [None]
  - TREMOR [None]
